FAERS Safety Report 24590166 (Version 2)
Quarter: 2025Q1

REPORT INFORMATION
  Report Type: Spontaneous
  Country: US (occurrence: US)
  Receive Date: 20241107
  Receipt Date: 20250210
  Transmission Date: 20250409
  Serious: No
  Sender: MEITHEAL PHARMACEUTICALS
  Company Number: US-MEITHEAL-2024MPSPO00305

PATIENT
  Age: 41 Year
  Sex: Female

DRUGS (2)
  1. CETRORELIX ACETATE [Suspect]
     Active Substance: CETRORELIX ACETATE
     Indication: Infertility
     Route: 065
  2. CETRORELIX ACETATE [Suspect]
     Active Substance: CETRORELIX ACETATE

REACTIONS (3)
  - Product dose omission issue [Unknown]
  - Device defective [Unknown]
  - Device breakage [Unknown]
